FAERS Safety Report 7423176-0 (Version None)
Quarter: 2011Q2

REPORT INFORMATION
  Report Type: 
  Country: None (occurrence: None)
  Receive Date: 20110413
  Receipt Date: 20110413
  Transmission Date: 20111010
  Serious: Yes (Hospitalization)
  Sender: FDA-Public Use
  Company Number: None

PATIENT
  Age: 85 Year
  Sex: Male
  Weight: 78.2 kg

DRUGS (2)
  1. MORPHINE [Suspect]
     Dosage: 1 TAB MG OTHER PO
     Route: 048
     Dates: start: 20110323, end: 20110411
  2. ACETAMINOPHEN AND HYDROCODONE BITARTRATE [Suspect]
     Indication: PAIN
     Dosage: 1 TAB MG OTHER PO
     Route: 048
     Dates: start: 20110318, end: 20110411

REACTIONS (2)
  - MENTAL STATUS CHANGES [None]
  - CONFUSIONAL STATE [None]
